FAERS Safety Report 4579131-1 (Version None)
Quarter: 2005Q1

REPORT INFORMATION
  Report Type: 
  Country: None (occurrence: None)
  Receive Date: 20050121
  Receipt Date: 20040520
  Transmission Date: 20050727
  Serious: Yes (Other)
  Sender: FDA-Public Use
  Company Number: STA-AE-04-MTX-209

PATIENT
  Age: 61 Year
  Sex: Female

DRUGS (7)
  1. METHOTREXATE [Suspect]
     Indication: RHEUMATOID ARTHRITIS
     Dosage: 12.5 MG 1X PER Q WK, ORAL
     Route: 048
     Dates: start: 19960101, end: 20040413
  2. REMICADE [Suspect]
     Indication: RHEUMATOID ARTHRITIS
     Dosage: 400 MG 1X PER 7 WKS, INTRAVENOUS
     Route: 042
     Dates: start: 20020218, end: 20040413
  3. FOLIC ACID [Concomitant]
  4. VIOXX [Concomitant]
  5. PREDNISONE [Concomitant]
  6. ZOLOFT [Concomitant]
  7. EVISTA [Concomitant]

REACTIONS (3)
  - B-CELL LYMPHOMA [None]
  - LYMPHADENOPATHY [None]
  - PSEUDO LYMPHOMA [None]
